FAERS Safety Report 8962293 (Version 1)
Quarter: 2012Q4

REPORT INFORMATION
  Report Type: 
  Country: FR (occurrence: FR)
  Receive Date: 20121212
  Receipt Date: 20121212
  Transmission Date: 20130627
  Serious: Yes (Other)
  Sender: FDA-Public Use
  Company Number: FR-WATSON-2012-21835

PATIENT
  Age: 35 Year
  Sex: Female

DRUGS (4)
  1. METHYLPREDNISOLONE ACETATE [Suspect]
     Indication: MYASTHENIA GRAVIS
     Dosage: UNK, unknown
     Route: 065
  2. PROPOFOL [Suspect]
     Indication: INDUCTION OF ANAESTHESIA
     Dosage: 180 mg, unknown
     Route: 065
  3. SUFENTANIL [Suspect]
     Indication: INDUCTION OF ANAESTHESIA
     Dosage: 20 mcg, unknown
     Route: 065
  4. ROCURONIUM [Suspect]
     Indication: INDUCTION OF ANAESTHESIA
     Dosage: 8 mg, unknown
     Route: 065

REACTIONS (2)
  - Myasthenia gravis [Not Recovered/Not Resolved]
  - Weaning failure [Not Recovered/Not Resolved]
